FAERS Safety Report 17765038 (Version 1)
Quarter: 2020Q2

REPORT INFORMATION
  Report Type: Spontaneous
  Country: US (occurrence: US)
  Receive Date: 20200511
  Receipt Date: 20200511
  Transmission Date: 20200714
  Serious: No
  Sender: FDA-Public Use
  Company Number: US-GLENMARK PHARMACEUTICALS-2020GMK047280

PATIENT

DRUGS (2)
  1. DESONIDE CREAM [Suspect]
     Active Substance: DESONIDE
     Indication: LIP INFECTION
     Dosage: UNK, BID
     Route: 061
     Dates: start: 20200331
  2. MUPIROCIN OINTMENT USP, 2% [Suspect]
     Active Substance: MUPIROCIN
     Indication: LIP INFECTION
     Dosage: UNK, BID
     Route: 065
     Dates: start: 2020

REACTIONS (2)
  - Product use issue [Unknown]
  - Drug effective for unapproved indication [Unknown]

NARRATIVE: CASE EVENT DATE: 2020
